FAERS Safety Report 9295830 (Version 1)
Quarter: 2013Q3

REPORT INFORMATION
  Report Type: Spontaneous
  Country: US (occurrence: None)
  Receive Date: 20130516
  Receipt Date: 20130516
  Transmission Date: 20140515
  Serious: Yes (Hospitalization)
  Sender: FDA-Public Use
  Company Number: None

PATIENT
  Age: 69 Year
  Sex: Male
  Weight: 63.96 kg

DRUGS (8)
  1. BORTEZOMIB [Suspect]
     Route: 058
     Dates: start: 20130412, end: 20130415
  2. DOXIL [Suspect]
     Route: 042
     Dates: start: 20130415
  3. ACYCLOVIR [Concomitant]
  4. GABAPENTIN [Concomitant]
  5. NORCO [Concomitant]
  6. MEGACE [Concomitant]
  7. ZOFRAN [Concomitant]
  8. COMPAZINE [Concomitant]

REACTIONS (3)
  - Pleuritic pain [None]
  - Atelectasis [None]
  - Rib fracture [None]
